FAERS Safety Report 7965513-4 (Version None)
Quarter: 2011Q4

REPORT INFORMATION
  Report Type: 
  Country: None (occurrence: None)
  Receive Date: 20111208
  Receipt Date: 20111128
  Transmission Date: 20120403
  Serious: Yes (Other)
  Sender: FDA-Public Use
  Company Number: DE-ALEXION-A201101695

PATIENT
  Sex: Female
  Weight: 70 kg

DRUGS (5)
  1. SOLIRIS [Suspect]
     Indication: HAEMOLYTIC URAEMIC SYNDROME
     Dosage: 900 MG, SINGLE
     Route: 042
     Dates: start: 20110609, end: 20110609
  2. SOLIRIS [Suspect]
     Dosage: 1200 MG, UNK
     Route: 042
     Dates: start: 20110719, end: 20110801
  3. ACETYLCYSTEINE [Concomitant]
     Dosage: 600 MG, QD
  4. KEPPRA [Concomitant]
     Dosage: 1000 MG, BID
  5. SOLIRIS [Suspect]
     Dosage: 600 MG, UNK
     Route: 042
     Dates: start: 20110610, end: 20110711

REACTIONS (1)
  - ACUTE MYELOID LEUKAEMIA [None]
